FAERS Safety Report 12837600 (Version 2)
Quarter: 2016Q4

REPORT INFORMATION
  Report Type: Spontaneous
  Country: BR (occurrence: BR)
  Receive Date: 20161012
  Receipt Date: 20161020
  Transmission Date: 20170207
  Serious: Yes (Other)
  Sender: FDA-Public Use
  Company Number: BR-ROCHE-1591869

PATIENT
  Age: 61 Year
  Sex: Male

DRUGS (8)
  1. VALIUM [Suspect]
     Active Substance: DIAZEPAM
     Indication: INSOMNIA
     Route: 065
     Dates: start: 201504
  2. RIVOTRIL [Suspect]
     Active Substance: CLONAZEPAM
     Indication: INSOMNIA
     Dosage: 1 AT MORNING AND 1 AT NIGHT
     Route: 065
  3. GLIFAGE [Concomitant]
     Active Substance: METFORMIN HYDROCHLORIDE
     Indication: DIABETES MELLITUS
  4. NPH INSULIN [Concomitant]
     Active Substance: INSULIN BEEF
     Indication: DIABETES MELLITUS
     Route: 029
  5. RIVOTRIL [Suspect]
     Active Substance: CLONAZEPAM
     Indication: ANXIETY
  6. AMLODIPINE [Concomitant]
     Active Substance: AMLODIPINE BESYLATE
     Route: 065
  7. TAMARINE (BRAZIL) [Concomitant]
  8. INSULIN [Concomitant]
     Active Substance: INSULIN NOS
     Indication: DIABETES MELLITUS
     Route: 029

REACTIONS (23)
  - Hypertension [Recovered/Resolved]
  - Anxiety [Unknown]
  - Tremor [Unknown]
  - Constipation [Unknown]
  - Erectile dysfunction [Not Recovered/Not Resolved]
  - Nightmare [Unknown]
  - Nervous system disorder [Unknown]
  - Irritability [Unknown]
  - Asthenia [Unknown]
  - Insomnia [Unknown]
  - Aggression [Unknown]
  - Intentional product use issue [Unknown]
  - Diabetes mellitus [Unknown]
  - Sleep disorder [Unknown]
  - Blood glucose decreased [Unknown]
  - Tremor [Not Recovered/Not Resolved]
  - Hallucination [Unknown]
  - Off label use [Unknown]
  - Visual impairment [Unknown]
  - Drug ineffective [Unknown]
  - Abnormal dreams [Unknown]
  - Dysstasia [Unknown]
  - Sexual dysfunction [Unknown]

NARRATIVE: CASE EVENT DATE: 201504
